FAERS Safety Report 25210188 (Version 1)
Quarter: 2025Q2

REPORT INFORMATION
  Report Type: Spontaneous
  Country: FR (occurrence: FR)
  Receive Date: 20250417
  Receipt Date: 20250417
  Transmission Date: 20250717
  Serious: Yes (Other)
  Sender: VERTEX
  Company Number: None

PATIENT
  Age: 24 Year
  Sex: Female
  Weight: 60 kg

DRUGS (9)
  1. ELEXACAFTOR\IVACAFTOR\TEZACAFTOR [Suspect]
     Active Substance: ELEXACAFTOR\IVACAFTOR\TEZACAFTOR
     Indication: Cystic fibrosis
     Dosage: 2 (75 MG IVACAFTOR/ 50 MG TEZACAFTOR/ 100 MG ELEXACAFTOR) QD
     Route: 048
     Dates: start: 2021
  2. KALYDECO [Suspect]
     Active Substance: IVACAFTOR
     Indication: Cystic fibrosis
     Dosage: 2 DOSAGE FORM, QD
     Route: 048
     Dates: start: 2021
  3. SERETIDE [Suspect]
     Active Substance: FLUTICASONE PROPIONATE\SALMETEROL XINAFOATE
     Indication: Asthma
     Dosage: 500/50MG, EVERY 12 HR
  4. PAROXETINE [Suspect]
     Active Substance: PAROXETINE
     Indication: Depression
     Dosage: 20 MILLIGRAM, QD
     Route: 048
  5. ESOMEPRAZOLE [Suspect]
     Active Substance: ESOMEPRAZOLE
     Indication: Gastrooesophageal reflux disease
     Dosage: 1 DOSAGE FORM, QD
     Route: 048
  6. EBASTINE [Suspect]
     Active Substance: EBASTINE
     Indication: Asthma
     Dosage: 2 DOSAGE FORM, QD
     Route: 048
  7. DYMISTA [Suspect]
     Active Substance: AZELASTINE HYDROCHLORIDE\FLUTICASONE PROPIONATE
     Indication: Hypersensitivity
     Dosage: 2 DOSAGE FORM, QD (PRN)
     Route: 045
  8. DUPHALAC [Suspect]
     Active Substance: LACTULOSE
     Indication: Constipation
     Route: 048
  9. VENTOLIN [Suspect]
     Active Substance: ALBUTEROL SULFATE
     Indication: Asthma
     Dosage: 2 DOSAGE FORM, QD AS NECESSARY

REACTIONS (1)
  - Dental caries [Not Recovered/Not Resolved]

NARRATIVE: CASE EVENT DATE: 20240101
